FAERS Safety Report 17835887 (Version 2)
Quarter: 2021Q4

REPORT INFORMATION
  Report Type: Report from Study
  Country: US (occurrence: US)
  Receive Date: 20200528
  Receipt Date: 20211204
  Transmission Date: 20220304
  Serious: No
  Sender: FDA-Public Use
  Company Number: US-NOVARTISTESTPH-NVSC2020US147579

PATIENT
  Sex: Female
  Weight: 67 kg

DRUGS (1)
  1. ILARIS [Suspect]
     Active Substance: CANAKINUMAB
     Indication: Rheumatoid arthritis
     Dosage: 260 MG/KG, Q4W
     Route: 058

REACTIONS (1)
  - Feeling abnormal [Unknown]
